FAERS Safety Report 22215544 (Version 1)
Quarter: 2023Q2

REPORT INFORMATION
  Report Type: Spontaneous
  Country: US (occurrence: US)
  Receive Date: 20230416
  Receipt Date: 20230416
  Transmission Date: 20230722
  Serious: No
  Sender: FDA-Public Use
  Company Number: US-JNJFOC-20190919916

PATIENT
  Age: 92 Year
  Sex: Female
  Weight: 77.180 kg

DRUGS (2)
  1. IMODIUM MULTI-SYMPTOM RELIEF [Suspect]
     Active Substance: DIMETHICONE\LOPERAMIDE HYDROCHLORIDE
     Indication: Diarrhoea
     Dosage: 2 CAPLETS AT FIRST DOSE AND THEN 6 HOURS OR 7 LATER PATIENT TOOK 1 CAPLET
     Route: 048
     Dates: start: 20190908, end: 20190908
  2. DOXYCYCLINE [Concomitant]
     Active Substance: DOXYCYCLINE
     Indication: Nephropathy
     Route: 065

REACTIONS (1)
  - Intentional product misuse [Unknown]
